FAERS Safety Report 5343838-9 (Version None)
Quarter: 2007Q2

REPORT INFORMATION
  Report Type: 
  Country: None (occurrence: None)
  Receive Date: 20070531
  Receipt Date: 20070518
  Transmission Date: 20071010
  Serious: Yes (Other)
  Sender: FDA-Public Use
  Company Number: 2007-00924

PATIENT
  Age: 49 Year
  Sex: Male
  Weight: 78.5 kg

DRUGS (2)
  1. VELCADE [Suspect]
     Indication: COLORECTAL CANCER
     Dosage: 0.70 MG.M2; INTRAVENOUS
     Route: 042
     Dates: start: 20070205
  2. VPROMPSTAT (SUBEROYLANILIDE HYDROXAMIC ACID) ORAL DRUG UNSPECIFIED FOR [Suspect]
     Indication: COLORECTAL CANCER
     Dosage: 100.00 MG, ORAL
     Route: 048
     Dates: start: 20070205

REACTIONS (1)
  - HYPERHIDROSIS [None]
